FAERS Safety Report 9371801 (Version 1)
Quarter: 2013Q2

REPORT INFORMATION
  Report Type: Spontaneous
  Country: US (occurrence: None)
  Receive Date: 20130625
  Receipt Date: 20130625
  Transmission Date: 20140414
  Serious: Yes (Other)
  Sender: FDA-Public Use
  Company Number: 2013GMK005936

PATIENT
  Age: 50 Year
  Sex: Male
  Weight: 131.5 kg

DRUGS (18)
  1. INDOMETHACIN [Suspect]
     Indication: SACROILIITIS
  2. OPODIS [Concomitant]
  3. ASPIRIN (ACETYLSALICYCLIC ACID) [Concomitant]
  4. DIGOXIN (DIGOXIN) [Concomitant]
  5. FERROUS SULFATE (FERROUS SULFATE) [Concomitant]
  6. ERYTHROPOIETIN (ERYTHROPOIETIN) [Concomitant]
  7. INSULINE GLARGINE (INSULINE GLARGINE) [Concomitant]
  8. INSULIN LISPRO (INSULIN LISPRO) [Concomitant]
  9. METOPROLOL (METOPROLOL) [Concomitant]
  10. MAGNESIUM OXIDE (MAGNESIUM OXIDE) [Concomitant]
  11. PANTOPRAZOLE (PANTOPRAZOLE) [Concomitant]
  12. RENAL MULTIVITAMIN [Concomitant]
  13. TRAMADOL (TRAMADOL) [Concomitant]
  14. COLCHICINE (COLCHICINE) [Concomitant]
  15. DOCUSATE W/SENNA (DOCUSATE, SENNA ALEXANDRINA) [Concomitant]
  16. COUMADIN [Concomitant]
  17. VANCOMYCIN (VANCOMYCIN) [Concomitant]
  18. CEFAZOLIN (CEFAZOLIN) [Concomitant]

REACTIONS (1)
  - Leukocytoclastic vasculitis [None]
